FAERS Safety Report 4864202-2 (Version None)
Quarter: 2005Q4

REPORT INFORMATION
  Report Type: 
  Country: None (occurrence: None)
  Receive Date: 20051222
  Receipt Date: 20051212
  Transmission Date: 20060501
  Serious: Yes (Hospitalization, Disabling)
  Sender: FDA-Public Use
  Company Number: NL-AMGEN-UK161189

PATIENT
  Sex: Male
  Weight: 62 kg

DRUGS (17)
  1. MIMPARA [Suspect]
     Indication: HYPERPARATHYROIDISM SECONDARY
     Route: 048
     Dates: start: 20050801, end: 20051210
  2. ATARAX [Concomitant]
     Route: 048
  3. ARANESP [Concomitant]
     Route: 042
     Dates: start: 20051209
  4. FRAGMIN [Concomitant]
     Route: 042
     Dates: start: 20051209
  5. MULTIVITAMIN [Concomitant]
     Route: 048
     Dates: start: 20031222
  6. MOVICOL [Concomitant]
     Dates: start: 20040609
  7. SEVELAMER HCL [Concomitant]
     Dates: start: 20031222
  8. MINOXIDIL [Concomitant]
     Route: 048
     Dates: start: 20051212
  9. LISINOPRIL [Concomitant]
     Route: 048
     Dates: start: 20051212
  10. BUMETANIDE [Concomitant]
     Route: 048
     Dates: start: 20051212
  11. LABETALOL [Concomitant]
     Route: 048
     Dates: start: 20051212
  12. NIFEDIPINE [Concomitant]
     Route: 048
     Dates: start: 20051212
  13. LOSARTAN [Concomitant]
     Route: 048
     Dates: start: 20030923
  14. MUPIROCIN [Concomitant]
     Dates: start: 20031210
  15. PARACETAMOL [Concomitant]
     Route: 048
     Dates: start: 20051212
  16. PHENYTOIN SODIUM [Concomitant]
     Route: 048
     Dates: start: 20051212
  17. HYDROXYZINE HYDROCHLORIDE [Concomitant]
     Route: 048
     Dates: start: 20050801

REACTIONS (8)
  - CONDITION AGGRAVATED [None]
  - CONVULSION [None]
  - DEVICE FAILURE [None]
  - MALAISE [None]
  - MALIGNANT HYPERTENSION [None]
  - PERITONEAL DIALYSIS [None]
  - PLEURAL EFFUSION [None]
  - PROCEDURAL COMPLICATION [None]
